FAERS Safety Report 7770434-6 (Version None)
Quarter: 2011Q3

REPORT INFORMATION
  Report Type: 
  Country: None (occurrence: None)
  Receive Date: 20110922
  Receipt Date: 20100830
  Transmission Date: 20111222
  Serious: No
  Sender: FDA-Public Use
  Company Number: US-ASTRAZENECA-2010SE40662

PATIENT
  Age: 43 Year
  Sex: Female
  Weight: 69.9 kg

DRUGS (1)
  1. SEROQUEL [Suspect]
     Indication: SCHIZOPHRENIA
     Route: 048
     Dates: start: 20100801, end: 20100801

REACTIONS (5)
  - NAUSEA [None]
  - WEIGHT DECREASED [None]
  - INSOMNIA [None]
  - HEADACHE [None]
  - DRUG DOSE OMISSION [None]
